FAERS Safety Report 5387718-1 (Version None)
Quarter: 2007Q3

REPORT INFORMATION
  Report Type: 
  Country: None (occurrence: None)
  Receive Date: 20070716
  Receipt Date: 20070710
  Transmission Date: 20080115
  Serious: Yes (Hospitalization)
  Sender: FDA-Public Use
  Company Number: A0662804A

PATIENT
  Age: 56 Year
  Sex: Male

DRUGS (3)
  1. AVANDAMET [Suspect]
     Route: 065
  2. GLIPIZIDE [Suspect]
     Route: 065
  3. INSULIN [Suspect]
     Route: 065

REACTIONS (1)
  - CHEST PAIN [None]
